FAERS Safety Report 4562757-9 (Version None)
Quarter: 2005Q1

REPORT INFORMATION
  Report Type: 
  Country: None (occurrence: None)
  Receive Date: 20050121
  Receipt Date: 20050104
  Transmission Date: 20050727
  Serious: Yes (Hospitalization)
  Sender: FDA-Public Use
  Company Number: EWC050142158

PATIENT
  Age: 32 Year
  Sex: Female

DRUGS (5)
  1. OLANZAPINE [Suspect]
     Indication: DEPRESSION
     Route: 048
  2. OLANZAPINE [Suspect]
     Indication: SCHIZOPHRENIA
     Route: 048
  3. BENZODIAZEPINE [Concomitant]
  4. LITHIUM [Concomitant]
  5. SEROTONINERGIC DRUG NOS [Concomitant]

REACTIONS (4)
  - COMA [None]
  - INTENTIONAL MISUSE [None]
  - RESPIRATORY FAILURE [None]
  - SUICIDE ATTEMPT [None]
